FAERS Safety Report 5310627-0 (Version None)
Quarter: 2007Q1

REPORT INFORMATION
  Report Type: 
  Country: None (occurrence: None)
  Receive Date: 20070201
  Receipt Date: 20061221
  Transmission Date: 20070707
  Serious: No
  Sender: FDA-Public Use
  Company Number: 259481

PATIENT
  Age: 11 Year
  Sex: Female
  Weight: 51.7 kg

DRUGS (2)
  1. LEVEMIR [Suspect]
     Indication: DIABETES MELLITUS INSULIN-DEPENDENT
     Dosage: 50-60 IU, QD, SUBCUTANEOUS
     Route: 058
     Dates: start: 20060908
  2. NOVOLOG [Suspect]
     Indication: DIABETES MELLITUS INSULIN-DEPENDENT
     Dosage: SLIDNG SCALE BEFORE MEALS, SUBCUTANEOUS
     Route: 058
     Dates: start: 20060908

REACTIONS (1)
  - BLOOD GLUCOSE DECREASED [None]
